FAERS Safety Report 9321019 (Version 1)
Quarter: 2013Q2

REPORT INFORMATION
  Report Type: Spontaneous
  Country: US (occurrence: None)
  Receive Date: 20130529
  Receipt Date: 20130529
  Transmission Date: 20140414
  Serious: Yes (Hospitalization)
  Sender: FDA-Public Use
  Company Number: None

PATIENT
  Age: 59 Year
  Sex: Female
  Weight: 82.6 kg

DRUGS (1)
  1. CISPLATIN [Suspect]
     Dosage: 100MG IV ON DAY AND DAY 29 CONCURRENT WITH RADIATION THERAPY

REACTIONS (6)
  - Small intestinal obstruction [None]
  - Ileus [None]
  - Hydronephrosis [None]
  - Ureteric stenosis [None]
  - Post procedural complication [None]
  - Gastrointestinal hypomotility [None]
